FAERS Safety Report 11539616 (Version 1)
Quarter: 2015Q3

REPORT INFORMATION
  Report Type: Spontaneous
  Country: US (occurrence: None)
  Receive Date: 20150922
  Receipt Date: 20150922
  Transmission Date: 20151125
  Serious: Yes (Disabling)
  Sender: FDA-Public Use
  Company Number: None

PATIENT
  Age: 68 Year
  Sex: Female
  Weight: 65.77 kg

DRUGS (7)
  1. ESTRADIOL. [Concomitant]
     Active Substance: ESTRADIOL
  2. METOPROLOL [Concomitant]
     Active Substance: METOPROLOL
  3. SPIRIVA [Concomitant]
     Active Substance: TIOTROPIUM BROMIDE MONOHYDRATE
  4. LASIX [Concomitant]
     Active Substance: FUROSEMIDE
  5. METRONIDAZOLE 500MG [Suspect]
     Active Substance: METRONIDAZOLE
     Indication: CLOSTRIDIUM DIFFICILE INFECTION
     Dosage: 1 PILL 3X DAILY MOUTH
     Route: 048
     Dates: end: 20150809
  6. OXYGEN. [Concomitant]
     Active Substance: OXYGEN
  7. CELEBREX [Concomitant]
     Active Substance: CELECOXIB

REACTIONS (3)
  - Pain [None]
  - Impaired work ability [None]
  - Swelling [None]
